FAERS Safety Report 7433685-6 (Version None)
Quarter: 2011Q2

REPORT INFORMATION
  Report Type: 
  Country: None (occurrence: None)
  Receive Date: 20110422
  Receipt Date: 20110411
  Transmission Date: 20111010
  Serious: Yes (Hospitalization)
  Sender: FDA-Public Use
  Company Number: FR-GENENTECH-316489

PATIENT
  Sex: Male

DRUGS (5)
  1. LEUPROLIDE ACETATE [Concomitant]
     Indication: PRODUCT USED FOR UNKNOWN INDICATION
     Dosage: UNK
     Route: 058
  2. SOMATROPIN [Suspect]
     Indication: GROWTH HORMONE DEFICIENCY
     Dosage: 1.31 MG, QD
     Route: 058
     Dates: start: 20080501
  3. ADVIL LIQUI-GELS [Concomitant]
     Indication: HEADACHE
     Route: 065
  4. ACETAMINOPHEN [Concomitant]
     Indication: HEADACHE
     Route: 065
  5. VENTOLIN [Concomitant]
     Indication: ASTHMA
     Route: 065

REACTIONS (1)
  - APPENDICECTOMY [None]
